FAERS Safety Report 25631036 (Version 1)
Quarter: 2025Q3

REPORT INFORMATION
  Report Type: Report from Study
  Country: AU (occurrence: AU)
  Receive Date: 20250801
  Receipt Date: 20250801
  Transmission Date: 20251020
  Serious: Yes (Other)
  Sender: ALEXION PHARMACEUTICALS
  Company Number: AU-AstraZeneca-CH-00920975A

PATIENT
  Sex: Male

DRUGS (1)
  1. TICAGRELOR [Suspect]
     Active Substance: TICAGRELOR
     Indication: Myocardial infarction
     Dosage: 90 MILLIGRAM, BID

REACTIONS (3)
  - Tongue haemorrhage [Recovered/Resolved]
  - Tongue biting [Recovered/Resolved]
  - Constipation [Not Recovered/Not Resolved]
